FAERS Safety Report 9440653 (Version 1)
Quarter: 2013Q3

REPORT INFORMATION
  Report Type: Report from Study
  Country: DE (occurrence: TR)
  Receive Date: 20130805
  Receipt Date: 20130805
  Transmission Date: 20140515
  Serious: Yes (Death, Other)
  Sender: FDA-Public Use
  Company Number: DE-ACTELION-A-US2011-57603

PATIENT
  Age: 54 Year
  Sex: Female

DRUGS (1)
  1. VENTAVIS [Suspect]
     Indication: PULMONARY HYPERTENSION
     Dosage: UNK
     Route: 045
     Dates: start: 20110104, end: 20111001

REACTIONS (3)
  - Pulmonary hypertension [Fatal]
  - Cough [Unknown]
  - Epistaxis [Unknown]
